FAERS Safety Report 7638818-4 (Version None)
Quarter: 2011Q3

REPORT INFORMATION
  Report Type: 
  Country: None (occurrence: None)
  Receive Date: 20110727
  Receipt Date: 20110718
  Transmission Date: 20111222
  Serious: Yes (Other)
  Sender: FDA-Public Use
  Company Number: US-AMGEN-USASP2011036642

PATIENT
  Age: 73 Year
  Sex: Female

DRUGS (1)
  1. ENBREL [Suspect]
     Indication: RHEUMATOID ARTHRITIS
     Dosage: 50 MG, QWK
     Dates: start: 20110706

REACTIONS (7)
  - BACK PAIN [None]
  - PARAESTHESIA [None]
  - RHEUMATOID ARTHRITIS [None]
  - HYPOAESTHESIA [None]
  - CONTUSION [None]
  - FALL [None]
  - GAIT DISTURBANCE [None]
